FAERS Safety Report 10045036 (Version 1)
Quarter: 2014Q1

REPORT INFORMATION
  Report Type: Spontaneous
  Country: CA (occurrence: CA)
  Receive Date: 20140328
  Receipt Date: 20140328
  Transmission Date: 20141002
  Serious: Yes (Life-Threatening, Hospitalization, Other)
  Sender: FDA-Public Use
  Company Number: PHHY2014CA033810

PATIENT
  Age: 60 Year
  Sex: Female
  Weight: 54.42 kg

DRUGS (4)
  1. CICLOSPORIN SANDOZ [Suspect]
     Dosage: 25 MG, QD
     Route: 048
  2. HYDROCHLOROTHIAZIDE [Concomitant]
  3. RAMIPRIL [Concomitant]
  4. SYNTHROID [Concomitant]

REACTIONS (4)
  - Appendicitis perforated [Recovered/Resolved]
  - Hypertension [Recovered/Resolved]
  - Urine output decreased [Recovered/Resolved]
  - Investigation [Recovered/Resolved]
